FAERS Safety Report 8295421-3 (Version None)
Quarter: 2012Q2

REPORT INFORMATION
  Report Type: 
  Country: None (occurrence: None)
  Receive Date: 20120418
  Receipt Date: 20120327
  Transmission Date: 20120825
  Serious: Yes (Hospitalization)
  Sender: FDA-Public Use
  Company Number: FR-ROCHE-1039722

PATIENT
  Sex: Male

DRUGS (2)
  1. PEMETREXED [Suspect]
     Indication: LUNG NEOPLASM MALIGNANT
     Dosage: DOSAGE FORM: 500 MG
     Route: 042
     Dates: start: 20120126
  2. AVASTIN [Suspect]
     Indication: LUNG NEOPLASM MALIGNANT
     Dosage: DOSAGE FORM: 400 MG
     Route: 042
     Dates: start: 20120126

REACTIONS (2)
  - GENERAL PHYSICAL HEALTH DETERIORATION [None]
  - RENAL TUBULAR DISORDER [None]
